FAERS Safety Report 9178431 (Version 1)
Quarter: 2013Q1

REPORT INFORMATION
  Report Type: Spontaneous
  Country: US (occurrence: US)
  Receive Date: 20130321
  Receipt Date: 20130321
  Transmission Date: 20140127
  Serious: Yes (Hospitalization)
  Sender: FDA-Public Use
  Company Number: US-BAYER-2013-033026

PATIENT
  Age: 49 Year
  Sex: Female
  Weight: 69.84 kg

DRUGS (3)
  1. YAZ [Suspect]
     Indication: MENORRHAGIA
  2. YASMIN [Suspect]
  3. VITAMIN D [Concomitant]

REACTIONS (1)
  - Pulmonary embolism [Recovered/Resolved]
